FAERS Safety Report 23319679 (Version 1)
Quarter: 2023Q4

REPORT INFORMATION
  Report Type: Report from Study
  Country: US (occurrence: US)
  Receive Date: 20231220
  Receipt Date: 20231220
  Transmission Date: 20240110
  Serious: Yes (Hospitalization)
  Sender: FDA-Public Use
  Company Number: US-ABBVIE-5548076

PATIENT
  Sex: Female

DRUGS (1)
  1. VENCLEXTA [Suspect]
     Active Substance: VENETOCLAX
     Indication: Acute myeloid leukaemia
     Dosage: FORM STRENGTH: 100 MILLIGRAM ?2 TABLETS BY MOUTH ORAL ONCE A DAY
     Route: 048
     Dates: start: 20231128

REACTIONS (10)
  - Platelet count decreased [Unknown]
  - Anaemia [Unknown]
  - Abdominal pain [Unknown]
  - Stomatitis [Not Recovered/Not Resolved]
  - Red blood cell count decreased [Unknown]
  - Dizziness [Unknown]
  - Diarrhoea [Unknown]
  - Oral mucosal eruption [Not Recovered/Not Resolved]
  - Cough [Unknown]
  - Nausea [Not Recovered/Not Resolved]

NARRATIVE: CASE EVENT DATE: 20230101
